FAERS Safety Report 9207716 (Version 6)
Quarter: 2014Q1

REPORT INFORMATION
  Report Type: Spontaneous
  Country: US (occurrence: US)
  Receive Date: 20130403
  Receipt Date: 20140204
  Transmission Date: 20141002
  Serious: Yes (Other)
  Sender: FDA-Public Use
  Company Number: US-ROCHE-1207298

PATIENT
  Age: 64 Year
  Sex: Female
  Weight: 55.84 kg

DRUGS (19)
  1. XOLAIR [Suspect]
     Indication: ASTHMA
     Dosage: MOST RECENT DOSE WAS ON  07/MAR/2013
     Route: 058
     Dates: start: 20110516, end: 20130321
  2. ADVAIR [Concomitant]
     Indication: ASTHMA
     Dosage: 500/50 MCG  1 PUFF BIDAILY
     Route: 055
     Dates: start: 2003
  3. ADVAIR [Concomitant]
     Dosage: 500/50
     Route: 050
     Dates: start: 20110218
  4. SINGULAIR [Concomitant]
     Indication: HYPERSENSITIVITY
     Dosage: 1 TAB QD
     Route: 048
     Dates: start: 2003
  5. SINGULAIR [Concomitant]
     Route: 048
     Dates: start: 20110218
  6. NASONEX [Concomitant]
     Indication: RHINITIS ALLERGIC
     Route: 045
     Dates: start: 2003
  7. NASONEX [Concomitant]
     Indication: RHINITIS ALLERGIC
     Route: 065
     Dates: start: 20110218
  8. XOPENEX HFA [Concomitant]
     Indication: ASTHMA
  9. IPRATROPIUM [Concomitant]
     Indication: HYPERSENSITIVITY
     Dosage: 2 SPRAYS PER NOSTRIL QD
     Route: 050
     Dates: start: 2010
  10. IPRATROPIUM [Concomitant]
     Route: 050
     Dates: start: 20110218
  11. ALPRAZOLAM [Concomitant]
     Indication: ANXIETY
     Route: 048
     Dates: start: 2011
  12. ADVIL [Concomitant]
     Indication: HEADACHE
     Route: 048
  13. CALCIUM CITRATE [Concomitant]
     Indication: CALCIUM DEFICIENCY
     Route: 048
  14. PRESERVISION AREDS [Concomitant]
     Indication: MACULAR DEGENERATION
     Dosage: 2 PILLS DAILY
     Route: 048
  15. ACTONEL [Concomitant]
     Indication: OSTEOPOROSIS
     Route: 048
     Dates: start: 20110218
  16. PEPCID [Concomitant]
     Route: 048
  17. VENTOLIN [Concomitant]
     Indication: ASTHMA
     Dosage: 2 PUFFS EVERY 6 HRS AS REQUIRED
     Route: 055
     Dates: start: 20111116
  18. FAMOTIDINE [Concomitant]
     Route: 048
  19. HYOSCYAMINE [Concomitant]
     Indication: IRRITABLE BOWEL SYNDROME
     Route: 065
     Dates: start: 201210

REACTIONS (5)
  - Respiratory distress [Unknown]
  - Dysphonia [Unknown]
  - Asthma [Unknown]
  - Chest discomfort [Unknown]
  - Urticaria [Unknown]
